FAERS Safety Report 16688933 (Version 1)
Quarter: 2019Q3

REPORT INFORMATION
  Report Type: Spontaneous
  Country: US (occurrence: US)
  Receive Date: 20190809
  Receipt Date: 20190809
  Transmission Date: 20191004
  Serious: No
  Sender: FDA-Public Use
  Company Number: None

PATIENT
  Age: 13 Year
  Sex: Male
  Weight: 49.5 kg

DRUGS (10)
  1. ZAFIRLUKAST 20 MG ONCE A DAY [Concomitant]
  2. BENADRYL 25MG ONCE A DAY [Concomitant]
  3. HEMLIBRA 150 MCG (EVERY OTHER WEEK) [Concomitant]
  4. TYLENOL AS NEEDED [Concomitant]
  5. DYMISTA [Suspect]
     Active Substance: AZELASTINE HYDROCHLORIDE\FLUTICASONE PROPIONATE
     Indication: MULTIPLE ALLERGIES
     Dosage: ?          QUANTITY:1 SPRAY(S);OTHER ROUTE:ONE SPRAY EACH NOSTRIL TWICE DAILY?
     Route: 045
     Dates: start: 20190807, end: 20190808
  6. FLONASE SENSIMIST 1 SPRAY IN EACH NOSTRIL TWICE A DAY [Concomitant]
  7. ADVAIR 250/50 ONCE DAILY [Concomitant]
  8. DYMISTA [Suspect]
     Active Substance: AZELASTINE HYDROCHLORIDE\FLUTICASONE PROPIONATE
     Indication: ASTHMA
     Dosage: ?          QUANTITY:1 SPRAY(S);OTHER ROUTE:ONE SPRAY EACH NOSTRIL TWICE DAILY?
     Route: 045
     Dates: start: 20190807, end: 20190808
  9. NOVOSEVEN RT 4MG Q2 PRN [Concomitant]
  10. ALBUTEROL INHALER PRN [Concomitant]

REACTIONS (1)
  - Dizziness [None]

NARRATIVE: CASE EVENT DATE: 20190809
